FAERS Safety Report 22058809 (Version 1)
Quarter: 2023Q1

REPORT INFORMATION
  Report Type: Spontaneous
  Country: CA (occurrence: CA)
  Receive Date: 20230303
  Receipt Date: 20230303
  Transmission Date: 20230418
  Serious: Yes (Other)
  Sender: FDA-Public Use
  Company Number: CA-MYLANLABS-2023M1023215

PATIENT
  Age: 29 Year
  Sex: Female

DRUGS (4)
  1. LAMOTRIGINE [Suspect]
     Active Substance: LAMOTRIGINE
     Indication: Major depression
     Dosage: UNK (GRADUAL INCREASE IN DOSE TO 75MG )
     Route: 065
  2. LAMOTRIGINE [Suspect]
     Active Substance: LAMOTRIGINE
     Dosage: 75 MILLIGRAM, BID
     Route: 065
  3. LOXAPINE [Concomitant]
     Active Substance: LOXAPINE
     Indication: Major depression
     Dosage: 10 MILLIGRAM, QD
     Route: 065
  4. OLANZAPINE [Concomitant]
     Active Substance: OLANZAPINE
     Indication: Major depression
     Dosage: 15 MILLIGRAM, QD
     Route: 065

REACTIONS (1)
  - Post-traumatic stress disorder [Recovered/Resolved]
